FAERS Safety Report 4909322-9 (Version None)
Quarter: 2006Q1

REPORT INFORMATION
  Report Type: 
  Country: None (occurrence: None)
  Receive Date: 20060213
  Receipt Date: 20050610
  Transmission Date: 20060701
  Serious: Yes (Other)
  Sender: FDA-Public Use
  Company Number: US-GLAXOSMITHKLINE-A0563281A

PATIENT
  Age: 26 Year
  Sex: Female
  Weight: 62.7 kg

DRUGS (1)
  1. LAMICTAL [Suspect]
     Dosage: 75MG TWICE PER DAY
     Dates: start: 20030601

REACTIONS (3)
  - ABORTION SPONTANEOUS [None]
  - DRUG EXPOSURE DURING PREGNANCY [None]
  - VAGINAL HAEMORRHAGE [None]
